FAERS Safety Report 7417207-1 (Version None)
Quarter: 2011Q2

REPORT INFORMATION
  Report Type: 
  Country: None (occurrence: None)
  Receive Date: 20110415
  Receipt Date: 20110120
  Transmission Date: 20111010
  Serious: Yes (Hospitalization)
  Sender: FDA-Public Use
  Company Number: US-BAYER-201038954NA

PATIENT
  Sex: Female
  Weight: 48 kg

DRUGS (7)
  1. PROTON PUMP INHIBITORS [Concomitant]
     Indication: NAUSEA
  2. OCELLA [Suspect]
     Indication: CONTRACEPTION
     Dosage: 1 DF, QD
     Dates: start: 20040101, end: 20090101
  3. PROTONIX [Concomitant]
  4. PAMELOR [Concomitant]
  5. LEVSIN [Concomitant]
  6. YASMIN [Suspect]
     Indication: CONTRACEPTION
     Dosage: 1 DF, QD
     Route: 048
     Dates: start: 20030101, end: 20090101
  7. PROTON PUMP INHIBITORS [Concomitant]
     Indication: ABDOMINAL PAIN

REACTIONS (2)
  - GALLBLADDER DISORDER [None]
  - CHOLECYSTITIS CHRONIC [None]
